FAERS Safety Report 18161048 (Version 1)
Quarter: 2020Q3

REPORT INFORMATION
  Report Type: Spontaneous
  Country: US (occurrence: US)
  Receive Date: 20200817
  Receipt Date: 20200817
  Transmission Date: 20201103
  Serious: No
  Sender: FDA-Public Use
  Company Number: None

PATIENT
  Sex: Female

DRUGS (1)
  1. HUMIRA [Suspect]
     Active Substance: ADALIMUMAB
     Indication: PSORIASIS
     Route: 058
     Dates: start: 2020

REACTIONS (4)
  - Lacrimation increased [None]
  - Eye pruritus [None]
  - Ocular hyperaemia [None]
  - Drug ineffective [None]

NARRATIVE: CASE EVENT DATE: 20200716
